FAERS Safety Report 22288680 (Version 1)
Quarter: 2023Q2

REPORT INFORMATION
  Report Type: Spontaneous
  Country: None (occurrence: CA)
  Receive Date: 20230505
  Receipt Date: 20230505
  Transmission Date: 20230722
  Serious: Yes (Hospitalization)
  Sender: FDA-Public Use
  Company Number: CA-B.Braun Medical Inc.-2141153

PATIENT
  Age: 34 Year
  Sex: Male

DRUGS (7)
  1. SODIUM CHLORIDE [Suspect]
     Active Substance: SODIUM CHLORIDE
     Indication: Pneumonia
     Route: 055
  2. AZITHROMYCIN [Suspect]
     Active Substance: AZITHROMYCIN
  3. DORNASE ALFA [Suspect]
     Active Substance: DORNASE ALFA
  4. MEROPENEM [Suspect]
     Active Substance: MEROPENEM
  5. SULFAMETHOXAZOLE\TRIMETHOPRIM [Suspect]
     Active Substance: SULFAMETHOXAZOLE\TRIMETHOPRIM
  6. LEVOFLOXACIN [Suspect]
     Active Substance: LEVOFLOXACIN
  7. TOBRAMYCIN [Suspect]
     Active Substance: TOBRAMYCIN

REACTIONS (3)
  - Drug ineffective for unapproved indication [Unknown]
  - Hypertransaminasaemia [Unknown]
  - Rash [Unknown]
